FAERS Safety Report 7353466-1 (Version None)
Quarter: 2011Q1

REPORT INFORMATION
  Report Type: 
  Country: None (occurrence: None)
  Receive Date: 20110304
  Receipt Date: 20110217
  Transmission Date: 20110831
  Serious: Yes (Other)
  Sender: FDA-Public Use
  Company Number: 20110152

PATIENT
  Age: 53 Year
  Sex: Male
  Weight: 90.7194 kg

DRUGS (5)
  1. SODIUM BICARBONATE [Suspect]
     Indication: LOCAL ANAESTHESIA
     Dosage: 32 ML IN 1000 ML NORMAL SALINE SUBCUTANEOUS
     Route: 058
     Dates: start: 20101129, end: 20101129
  2. LIDOCAINE [Concomitant]
  3. NORMAL SALINE [Concomitant]
  4. SODIUM BICARBONATE [Suspect]
     Indication: LOCAL ANAESTHESIA
     Dosage: 32 ML IN 1000 ML NORMAL SALINE SUBCUTANEOUS
     Route: 058
     Dates: start: 20101108, end: 20101108
  5. COUMADIN [Concomitant]

REACTIONS (4)
  - INJECTION SITE ERYTHEMA [None]
  - INJECTION SITE PAIN [None]
  - ERYTHEMA [None]
  - JOINT SWELLING [None]
